FAERS Safety Report 22701376 (Version 4)
Quarter: 2024Q2

REPORT INFORMATION
  Report Type: Spontaneous
  Country: US (occurrence: US)
  Receive Date: 20230713
  Receipt Date: 20240429
  Transmission Date: 20240716
  Serious: Yes (Death, Life-Threatening, Hospitalization, Other)
  Sender: FDA-Public Use
  Company Number: US-BAYER-2023A069653

PATIENT
  Age: 59 Year
  Sex: Female

DRUGS (3)
  1. PAXLOVID [Interacting]
     Active Substance: NIRMATRELVIR\RITONAVIR
     Indication: COVID-19 treatment
     Dosage: TWO DOSES OF NIRMATRELVIR/RITONAVIR (PAXLOVID)
  2. NIFEDIPINE [Interacting]
     Active Substance: NIFEDIPINE
     Dosage: UNK
  3. OXYGEN [Concomitant]
     Active Substance: OXYGEN
     Indication: Oxygen therapy
     Dosage: FREQ:1 MIN;

REACTIONS (8)
  - Overdose [Fatal]
  - Lactic acidosis [Fatal]
  - Bradycardia [Fatal]
  - Ejection fraction decreased [Fatal]
  - Drug interaction [Fatal]
  - Right ventricular dysfunction [Fatal]
  - Pulseless electrical activity [Fatal]
  - Hypotension [Fatal]
